FAERS Safety Report 17490954 (Version 2)
Quarter: 2021Q4

REPORT INFORMATION
  Report Type: Spontaneous
  Country: DE (occurrence: DE)
  Receive Date: 20200303
  Receipt Date: 20211109
  Transmission Date: 20220303
  Serious: Yes (Hospitalization)
  Sender: FDA-Public Use
  Company Number: DE-NOVARTISPH-NVSC2020DE057692

PATIENT
  Age: 64 Year
  Sex: Female
  Weight: 83 kg

DRUGS (13)
  1. FLUOROURACIL [Suspect]
     Active Substance: FLUOROURACIL
     Indication: Colorectal cancer metastatic
     Dosage: 760 MG
     Route: 040
     Dates: start: 20190902
  2. FLUOROURACIL [Suspect]
     Active Substance: FLUOROURACIL
     Dosage: 4575 MG
     Route: 042
     Dates: start: 20190902
  3. FLUOROURACIL [Suspect]
     Active Substance: FLUOROURACIL
     Dosage: 3650 MG
     Route: 042
     Dates: start: 20191118
  4. OXALIPLATIN [Suspect]
     Active Substance: OXALIPLATIN
     Indication: Colorectal cancer metastatic
     Dosage: 160 MG
     Route: 065
     Dates: start: 20190902
  5. VECTIBIX [Suspect]
     Active Substance: PANITUMUMAB
     Indication: Colorectal cancer metastatic
     Dosage: 500 MG
     Route: 042
     Dates: start: 20190918
  6. VECTIBIX [Suspect]
     Active Substance: PANITUMUMAB
     Dosage: 500 MG
     Route: 042
     Dates: start: 20200722
  7. VECTIBIX [Suspect]
     Active Substance: PANITUMUMAB
     Dosage: 450 MG
     Route: 042
     Dates: start: 20200624
  8. VECTIBIX [Suspect]
     Active Substance: PANITUMUMAB
     Dosage: 480 MG
     Route: 042
     Dates: start: 20200219
  9. LEUCOVORIN [Suspect]
     Active Substance: LEUCOVORIN
     Indication: Colorectal cancer metastatic
     Dosage: 760 MG
     Route: 065
     Dates: start: 20190902
  10. LEUCOVORIN [Suspect]
     Active Substance: LEUCOVORIN
     Dosage: 610 MG
     Route: 065
     Dates: start: 20191118
  11. NOVALGIN [Concomitant]
     Indication: Pain
     Dosage: 500 MG, AS NECESSARY
     Route: 048
     Dates: start: 20190704
  12. XARELTO [Concomitant]
     Active Substance: RIVAROXABAN
     Indication: Pulmonary embolism
     Dosage: 20 MG, QD
     Route: 048
     Dates: start: 20190704
  13. PANTOPRAZOLE [Concomitant]
     Active Substance: PANTOPRAZOLE
     Indication: Prophylaxis
     Dosage: 40 MG, QD
     Route: 048
     Dates: start: 20190704

REACTIONS (1)
  - Diarrhoea [Recovered/Resolved]

NARRATIVE: CASE EVENT DATE: 20191028
